FAERS Safety Report 14686787 (Version 2)
Quarter: 2018Q2

REPORT INFORMATION
  Report Type: Spontaneous
  Country: US (occurrence: US)
  Receive Date: 20180327
  Receipt Date: 20180604
  Transmission Date: 20180711
  Serious: No
  Sender: FDA-Public Use
  Company Number: US-ACTELION-A-NJ2018-169758

PATIENT
  Age: 79 Year
  Sex: Female

DRUGS (3)
  1. BACTRIM [Suspect]
     Active Substance: SULFAMETHOXAZOLE\TRIMETHOPRIM
     Indication: SINUSITIS
     Route: 065
  2. OXYGEN. [Concomitant]
     Active Substance: OXYGEN
  3. OPSUMIT [Suspect]
     Active Substance: MACITENTAN
     Indication: PULMONARY ARTERIAL HYPERTENSION
     Dosage: 10 MG, QD
     Route: 048
     Dates: start: 20180228

REACTIONS (8)
  - Peripheral swelling [Unknown]
  - Nausea [Unknown]
  - Nasal congestion [Unknown]
  - Vomiting [Unknown]
  - Sinusitis [Unknown]
  - Skin lesion [Unknown]
  - Extra dose administered [Unknown]
  - Nasal dryness [Unknown]

NARRATIVE: CASE EVENT DATE: 20180314
